FAERS Safety Report 8144554-0 (Version None)
Quarter: 2012Q1

REPORT INFORMATION
  Report Type: 
  Country: None (occurrence: None)
  Receive Date: 20120214
  Receipt Date: 20120126
  Transmission Date: 20120608
  Serious: Yes (Other)
  Sender: FDA-Public Use
  Company Number: C12-006

PATIENT
  Age: 4 Year
  Sex: Female
  Weight: 19 kg

DRUGS (1)
  1. PRE-PEN ALLERQUEST LLC [Suspect]
     Indication: SENSITISATION
     Dosage: DROP, PUNCTURE;ONCE, 023
     Dates: start: 20120124

REACTIONS (4)
  - PRURITUS [None]
  - URTICARIA [None]
  - INFUSION SITE SWELLING [None]
  - NASAL CONGESTION [None]
